FAERS Safety Report 7974773-5 (Version None)
Quarter: 2011Q4

REPORT INFORMATION
  Report Type: 
  Country: None (occurrence: None)
  Receive Date: 20111213
  Receipt Date: 20111130
  Transmission Date: 20120403
  Serious: Yes (Life-Threatening, Other)
  Sender: FDA-Public Use
  Company Number: JP-MILLENNIUM PHARMACEUTICALS, INC.-2011-06143

PATIENT

DRUGS (2)
  1. NELARABINE [Concomitant]
     Indication: T-CELL CHRONIC LYMPHOCYTIC LEUKAEMIA
  2. VELCADE [Suspect]
     Indication: T-CELL CHRONIC LYMPHOCYTIC LEUKAEMIA

REACTIONS (6)
  - RESPIRATORY ARREST [None]
  - MUSCLE ATROPHY [None]
  - CANCER PAIN [None]
  - PARALYSIS [None]
  - NEUROPATHY PERIPHERAL [None]
  - OFF LABEL USE [None]
